FAERS Safety Report 15813860 (Version 1)
Quarter: 2019Q1

REPORT INFORMATION
  Report Type: Spontaneous
  Country: US (occurrence: US)
  Receive Date: 20190111
  Receipt Date: 20190111
  Transmission Date: 20190417
  Serious: Yes (Disabling)
  Sender: FDA-Public Use
  Company Number: None

PATIENT
  Age: 13 Year
  Sex: Female
  Weight: 42.75 kg

DRUGS (9)
  1. PULMOZYME [Concomitant]
     Active Substance: DORNASE ALFA
  2. BUDESONIDE. [Concomitant]
     Active Substance: BUDESONIDE
  3. ALBUTEROL. [Concomitant]
     Active Substance: ALBUTEROL
  4. HYPERTONIC SALINE [Concomitant]
     Active Substance: SODIUM CHLORIDE
  5. AQUADEK VITAMIN [Concomitant]
  6. LEVAQUIN [Suspect]
     Active Substance: LEVOFLOXACIN
     Indication: SINUSITIS
     Dosage: ?          QUANTITY:1 CAPSULE(S);?
     Route: 048
     Dates: start: 20181128, end: 20181203
  7. NASACORT [Concomitant]
     Active Substance: TRIAMCINOLONE ACETONIDE
  8. CREON [Concomitant]
     Active Substance: PANCRELIPASE AMYLASE\PANCRELIPASE LIPASE\PANCRELIPASE PROTEASE
  9. VITAMIN D [Concomitant]
     Active Substance: CHOLECALCIFEROL

REACTIONS (3)
  - Synovitis [None]
  - Joint swelling [None]
  - Arthritis bacterial [None]

NARRATIVE: CASE EVENT DATE: 20181201
